FAERS Safety Report 7879553-7 (Version None)
Quarter: 2011Q4

REPORT INFORMATION
  Report Type: 
  Country: None (occurrence: None)
  Receive Date: 20111101
  Receipt Date: 20111027
  Transmission Date: 20120403
  Serious: Yes (Other)
  Sender: FDA-Public Use
  Company Number: US-GLAXOSMITHKLINE-A0941362A

PATIENT
  Age: 80 Year
  Sex: Male

DRUGS (5)
  1. SPIRIVA [Suspect]
     Indication: CHRONIC OBSTRUCTIVE PULMONARY DISEASE
     Dosage: 1PUFF PER DAY
     Dates: start: 20110201
  2. ADVAIR DISKUS 100/50 [Suspect]
     Indication: CHRONIC OBSTRUCTIVE PULMONARY DISEASE
     Dosage: 1PUFF PER DAY
     Route: 055
     Dates: start: 20110201
  3. BLOOD PRESSURE MEDICATION [Concomitant]
  4. OXYGEN [Concomitant]
  5. CHOLESTEROL REDUCING AGENT [Concomitant]

REACTIONS (2)
  - HYPOXIA [None]
  - DRUG INEFFECTIVE [None]
